FAERS Safety Report 8268023-2 (Version None)
Quarter: 2012Q2

REPORT INFORMATION
  Report Type: 
  Country: None (occurrence: None)
  Receive Date: 20120409
  Receipt Date: 20120405
  Transmission Date: 20120825
  Serious: Yes (Life-Threatening, Hospitalization)
  Sender: FDA-Public Use
  Company Number: CH-ASTRAZENECA-2012SE22623

PATIENT
  Sex: Male

DRUGS (6)
  1. ASPIRIN [Concomitant]
  2. SEROQUEL [Suspect]
     Route: 048
  3. RENITEN [Concomitant]
  4. ATORVASTATIN CALCIUM [Concomitant]
  5. DIPERON [Concomitant]
  6. ENALAPRIL MALEATE AND HYDROCHLOROTHIAZIDE [Concomitant]

REACTIONS (1)
  - VENTRICULAR TACHYCARDIA [None]
